FAERS Safety Report 4398732-7 (Version None)
Quarter: 2004Q3

REPORT INFORMATION
  Report Type: 
  Country: None (occurrence: None)
  Receive Date: 20040712
  Receipt Date: 20040625
  Transmission Date: 20050211
  Serious: Yes (Hospitalization, Other)
  Sender: FDA-Public Use
  Company Number: 188148

PATIENT
  Age: 40 Year
  Sex: Female
  Weight: 74 kg

DRUGS (9)
  1. AVONEX [Suspect]
     Indication: MULTIPLE SCLEROSIS
     Dosage: 30 MCG QW IM
     Route: 030
     Dates: start: 19990101, end: 20031122
  2. PLACEBO [Concomitant]
  3. DITROPAN [Concomitant]
  4. SOLU-MEDROL [Concomitant]
  5. ZYRTEC [Concomitant]
  6. DAFALGAN [Concomitant]
  7. CATAFLAM [Concomitant]
  8. TRAMADOL HCL [Concomitant]
  9. MYOLASTAN [Concomitant]

REACTIONS (17)
  - DERMATITIS ALLERGIC [None]
  - DERMATITIS EXFOLIATIVE [None]
  - HAEMOGLOBIN DECREASED [None]
  - INJECTION SITE ERYTHEMA [None]
  - MARKEDLY REDUCED DIETARY INTAKE [None]
  - OLIGURIA [None]
  - PAIN [None]
  - PHARYNGOLARYNGEAL PAIN [None]
  - PLATELET COUNT INCREASED [None]
  - RASH GENERALISED [None]
  - RASH MACULAR [None]
  - RASH PRURITIC [None]
  - SKIN DESQUAMATION [None]
  - SUBCUTANEOUS ABSCESS [None]
  - SWOLLEN TONGUE [None]
  - TONGUE DISCOLOURATION [None]
  - VAGINAL DISORDER [None]
